FAERS Safety Report 5106956-6 (Version None)
Quarter: 2006Q3

REPORT INFORMATION
  Report Type: 
  Country: None (occurrence: None)
  Receive Date: 20060913
  Receipt Date: 20060905
  Transmission Date: 20061208
  Serious: Yes (Life-Threatening, Hospitalization)
  Sender: FDA-Public Use
  Company Number: HQWYE406207SEP06

PATIENT
  Sex: Male

DRUGS (1)
  1. ADVIL [Suspect]
     Dates: end: 20041030

REACTIONS (4)
  - BLISTER [None]
  - EYE DISORDER [None]
  - NAIL DISORDER [None]
  - SKIN LESION [None]
